FAERS Safety Report 4398940-5 (Version None)
Quarter: 2004Q3

REPORT INFORMATION
  Report Type: 
  Country: None (occurrence: None)
  Receive Date: 20040712
  Receipt Date: 20040617
  Transmission Date: 20050211
  Serious: Yes (Other)
  Sender: FDA-Public Use
  Company Number: USA040567566

PATIENT
  Age: 35 Year
  Sex: Female
  Weight: 105 kg

DRUGS (4)
  1. XIGRIS [Suspect]
     Indication: SEPSIS
     Dosage: 24 UG/KG/HR/96 HOUR
     Dates: start: 20040511, end: 20040515
  2. NEO-SYNEPHRINE (PHENYLEPHRINE HYDROCHLORIDE) [Concomitant]
  3. LEVOPHED [Concomitant]
  4. VASOPRESSIN INJECTION [Concomitant]

REACTIONS (5)
  - DEEP VEIN THROMBOSIS [None]
  - HAEMATOCRIT DECREASED [None]
  - HAEMOGLOBIN DECREASED [None]
  - MEDICATION ERROR [None]
  - POST PROCEDURAL COMPLICATION [None]
